FAERS Safety Report 5902042-3 (Version None)
Quarter: 2008Q3

REPORT INFORMATION
  Report Type: 
  Country: None (occurrence: None)
  Receive Date: 20080929
  Receipt Date: 20080917
  Transmission Date: 20090109
  Serious: Yes (Hospitalization, Other)
  Sender: FDA-Public Use
  Company Number: JP-PFIZER INC-2008044680

PATIENT
  Sex: Male
  Weight: 58 kg

DRUGS (5)
  1. SULPERAZON [Suspect]
     Indication: JAUNDICE CHOLESTATIC
     Dosage: DAILY DOSE:2GRAM
     Route: 042
     Dates: start: 20080428, end: 20080511
  2. SULPERAZON [Suspect]
     Indication: INFECTION
     Dosage: DAILY DOSE:4GRAM
     Route: 042
     Dates: start: 20080531, end: 20080602
  3. VEEN D [Concomitant]
     Route: 042
     Dates: start: 20080428, end: 20080507
  4. GLUCOSE W/ELECTROLYTES [Concomitant]
     Route: 042
     Dates: start: 20080428, end: 20080507
  5. SOLITA-T 3G [Concomitant]
     Route: 042
     Dates: start: 20080508, end: 20080512

REACTIONS (1)
  - PLATELET COUNT DECREASED [None]
